FAERS Safety Report 8562315-5 (Version None)
Quarter: 2012Q3

REPORT INFORMATION
  Report Type: 
  Country: None (occurrence: None)
  Receive Date: 20120802
  Receipt Date: 20120713
  Transmission Date: 20120928
  Serious: No
  Sender: FDA-Public Use
  Company Number: US-AMGEN-USASP2012043648

PATIENT
  Age: 42 Year
  Sex: Male

DRUGS (2)
  1. ENBREL [Suspect]
     Indication: RHEUMATOID ARTHRITIS
  2. ENBREL [Suspect]
     Indication: GOUT
     Dosage: 50 MG, QWK
     Dates: start: 20061027, end: 20110101

REACTIONS (2)
  - GOUT [None]
  - HEPATIC ENZYME INCREASED [None]
